FAERS Safety Report 4808282-9 (Version None)
Quarter: 2005Q4

REPORT INFORMATION
  Report Type: 
  Country: None (occurrence: None)
  Receive Date: 20051021
  Receipt Date: 20011106
  Transmission Date: 20060501
  Serious: Yes (Hospitalization, Other)
  Sender: FDA-Public Use
  Company Number: EWC011128928

PATIENT
  Age: 17 Year
  Sex: Female
  Weight: 26.7622 kg

DRUGS (2)
  1. ZYPREXA [Suspect]
     Indication: ANOREXIA NERVOSA
     Dosage: 10 MG/DAY
     Dates: start: 20010522, end: 20010525
  2. PROZAC [Concomitant]

REACTIONS (2)
  - NEUTROPENIA [None]
  - WHITE BLOOD CELL COUNT DECREASED [None]
